APPROVED DRUG PRODUCT: SANDOSTATIN LAR
Active Ingredient: OCTREOTIDE ACETATE
Strength: EQ 20MG BASE/VIAL
Dosage Form/Route: INJECTABLE;INJECTION
Application: N021008 | Product #002 | TE Code: AB
Applicant: NOVARTIS PHARMACEUTICALS CORP
Approved: Nov 25, 1998 | RLD: Yes | RS: No | Type: RX